FAERS Safety Report 11043064 (Version 1)
Quarter: 2015Q2

REPORT INFORMATION
  Report Type: Spontaneous
  Country: US (occurrence: None)
  Receive Date: 20150416
  Receipt Date: 20150416
  Transmission Date: 20150821
  Serious: Yes (Hospitalization, Disabling)
  Sender: FDA-Public Use
  Company Number: None

PATIENT
  Age: 34 Year
  Sex: Female
  Weight: 68.04 kg

DRUGS (13)
  1. LEVAQUIN [Suspect]
     Active Substance: LEVOFLOXACIN
     Indication: PNEUMONIA
     Route: 048
     Dates: start: 20150324, end: 20150401
  2. PRENISONE [Concomitant]
  3. CELEBREX [Concomitant]
     Active Substance: CELECOXIB
  4. OXYCODONE [Concomitant]
     Active Substance: OXYCODONE
  5. PRENATE ESSENTIAL SOFTGEL [Concomitant]
  6. FLECTOR [Concomitant]
     Active Substance: DICLOFENAC EPOLAMINE
  7. VITAMIN C [Concomitant]
     Active Substance: ASCORBIC ACID
  8. LYRICA [Concomitant]
     Active Substance: PREGABALIN
  9. ONDANSETRON [Concomitant]
     Active Substance: ONDANSETRON
  10. PREDNISONE. [Suspect]
     Active Substance: PREDNISONE
     Indication: PNEUMONIA
     Route: 048
     Dates: start: 20150320, end: 20150401
  11. LEVAQUIN [Concomitant]
     Active Substance: LEVOFLOXACIN
  12. MAGNESIUM OXIDE. [Concomitant]
     Active Substance: MAGNESIUM OXIDE
  13. VITAMIN D3 [Concomitant]
     Active Substance: CHOLECALCIFEROL

REACTIONS (3)
  - Gait disturbance [None]
  - Arthralgia [None]
  - Pain in extremity [None]

NARRATIVE: CASE EVENT DATE: 20150403
